FAERS Safety Report 7266028-1 (Version None)
Quarter: 2011Q1

REPORT INFORMATION
  Report Type: 
  Country: None (occurrence: None)
  Receive Date: 20110119
  Receipt Date: 20110110
  Transmission Date: 20110831
  Serious: Yes (Other)
  Sender: FDA-Public Use
  Company Number: 2011SP001163

PATIENT
  Age: 31 Year
  Sex: Female

DRUGS (3)
  1. LORATADINE [Suspect]
     Indication: URTICARIA
     Dosage: 10 MG; QD; PO
     Route: 048
     Dates: start: 20100601, end: 20100601
  2. YASMIN [Concomitant]
  3. SARIDON  /00048501/ [Concomitant]

REACTIONS (2)
  - SOMNOLENCE [None]
  - ACTIVITIES OF DAILY LIVING IMPAIRED [None]
